FAERS Safety Report 18352518 (Version 1)
Quarter: 2020Q4

REPORT INFORMATION
  Report Type: Spontaneous
  Country: US (occurrence: US)
  Receive Date: 20201006
  Receipt Date: 20201006
  Transmission Date: 20210114
  Serious: No
  Sender: FDA-Public Use
  Company Number: US-ALLERGAN-2030647US

PATIENT
  Age: 84 Year
  Sex: Female

DRUGS (4)
  1. LINZESS [Suspect]
     Active Substance: LINACLOTIDE
     Indication: IRRITABLE BOWEL SYNDROME
     Dosage: 145 ?G, QAM
     Route: 048
     Dates: start: 20200808, end: 20200811
  2. LISINOPRIL. [Concomitant]
     Active Substance: LISINOPRIL
     Indication: HYPERTENSION
     Dosage: 5 MG, QD
     Route: 048
  3. XARELTO [Concomitant]
     Active Substance: RIVAROXABAN
     Indication: ATRIAL FIBRILLATION
     Dosage: 20 MG, QPM
     Route: 048
  4. ATENOLOL. [Concomitant]
     Active Substance: ATENOLOL
     Indication: HYPERTENSION
     Dosage: 25 MG, QD
     Route: 048

REACTIONS (8)
  - Decreased appetite [Recovered/Resolved]
  - Burning sensation [Recovering/Resolving]
  - Incorrect dose administered [Unknown]
  - Fatigue [Recovered/Resolved]
  - Inappropriate schedule of product administration [Unknown]
  - Abdominal pain upper [Recovered/Resolved]
  - Listless [Recovered/Resolved]
  - Diarrhoea [Recovered/Resolved]

NARRATIVE: CASE EVENT DATE: 20200810
